FAERS Safety Report 7327903-2 (Version None)
Quarter: 2011Q1

REPORT INFORMATION
  Report Type: 
  Country: None (occurrence: None)
  Receive Date: 20110224
  Receipt Date: 20110224
  Transmission Date: 20110831
  Serious: No
  Sender: FDA-Public Use
  Company Number: None

PATIENT
  Sex: Female
  Weight: 111.5849 kg

DRUGS (2)
  1. PREVACID [Suspect]
     Indication: GASTROOESOPHAGEAL REFLUX DISEASE
     Dosage: 15MG BID ORAL
     Route: 048
  2. PREVACID [Suspect]
     Indication: BARRETT'S OESOPHAGUS
     Dosage: 15MG BID ORAL
     Route: 048

REACTIONS (1)
  - DRUG INEFFECTIVE [None]
